FAERS Safety Report 9288072 (Version 1)
Quarter: 2013Q2

REPORT INFORMATION
  Report Type: Spontaneous
  Country: CZ (occurrence: None)
  Receive Date: 20130509
  Receipt Date: 20130509
  Transmission Date: 20140414
  Serious: Yes (Other)
  Sender: FDA-Public Use
  Company Number: AUR-APL-2013-03771

PATIENT
  Age: 62 Year
  Sex: Male

DRUGS (2)
  1. RAMIPRIL (RAMIPRIL) [Suspect]
     Indication: HYPERTENSION
     Dosage: STOPPED?
     Route: 048
  2. THYROXIN [Concomitant]

REACTIONS (2)
  - Pulmonary congestion [None]
  - Cough [None]
